FAERS Safety Report 16850457 (Version 3)
Quarter: 2019Q4

REPORT INFORMATION
  Report Type: Spontaneous
  Country: IT (occurrence: IT)
  Receive Date: 20190925
  Receipt Date: 20191002
  Transmission Date: 20200122
  Serious: Yes (Death, Hospitalization)
  Sender: FDA-Public Use
  Company Number: IT-B.I. PHARMACEUTICALS,INC./RIDGEFIELD-2019-BI-103454

PATIENT
  Sex: Male

DRUGS (1)
  1. PRADAXA [Suspect]
     Active Substance: DABIGATRAN ETEXILATE MESYLATE
     Indication: PRODUCT USED FOR UNKNOWN INDICATION
     Route: 065

REACTIONS (5)
  - Thrombin time prolonged [Not Recovered/Not Resolved]
  - Intestinal operation [Fatal]
  - Intestinal infarction [Fatal]
  - Haemorrhagic disorder [Fatal]
  - Volvulus [Fatal]

NARRATIVE: CASE EVENT DATE: 20190915
